FAERS Safety Report 10815152 (Version 2)
Quarter: 2020Q1

REPORT INFORMATION
  Report Type: Report from Study
  Country: US (occurrence: US)
  Receive Date: 20150218
  Receipt Date: 20200224
  Transmission Date: 20200409
  Serious: Yes (Hospitalization)
  Sender: FDA-Public Use
  Company Number: US-SA-2014SA103500

PATIENT
  Age: 50 Year
  Sex: Female

DRUGS (4)
  1. TERIFLUNOMIDE. [Suspect]
     Active Substance: TERIFLUNOMIDE
     Dosage: 7 MG,QOD
     Route: 048
     Dates: start: 20140901
  2. TERIFLUNOMIDE. [Suspect]
     Active Substance: TERIFLUNOMIDE
     Dosage: 7 MG,QD
     Route: 048
     Dates: end: 20141225
  3. TERIFLUNOMIDE. [Suspect]
     Active Substance: TERIFLUNOMIDE
     Dosage: 7 MG,QD
     Route: 048
     Dates: start: 20140731, end: 20140812
  4. TERIFLUNOMIDE. [Suspect]
     Active Substance: TERIFLUNOMIDE
     Indication: MULTIPLE SCLEROSIS
     Dosage: 7 MG,QD
     Route: 048
     Dates: start: 20140702, end: 20140727

REACTIONS (26)
  - Weight decreased [Recovering/Resolving]
  - Inappropriate schedule of product administration [Unknown]
  - Anaemia [Recovering/Resolving]
  - Crying [Unknown]
  - Pain in extremity [Recovering/Resolving]
  - Fatigue [Unknown]
  - Product dose omission [Unknown]
  - Nasopharyngitis [Recovering/Resolving]
  - Abdominal discomfort [Unknown]
  - Blister [Unknown]
  - Palpitations [Recovered/Resolved]
  - White blood cell count decreased [Unknown]
  - Abdominal pain upper [Unknown]
  - Diarrhoea [Unknown]
  - Depression [Recovering/Resolving]
  - Decreased appetite [Recovering/Resolving]
  - Gait disturbance [Unknown]
  - Skin exfoliation [Unknown]
  - Depressed mood [Unknown]
  - Feeling hot [Unknown]
  - Feeling abnormal [Unknown]
  - Treatment failure [Unknown]
  - Gastric disorder [Unknown]
  - Nausea [Unknown]
  - Decreased appetite [Unknown]
  - Menorrhagia [Unknown]

NARRATIVE: CASE EVENT DATE: 2014
